FAERS Safety Report 8875263 (Version 2)
Quarter: 2012Q4

REPORT INFORMATION
  Report Type: 
  Country: KR (occurrence: KR)
  Receive Date: 20121029
  Receipt Date: 20121128
  Transmission Date: 20130627
  Serious: No
  Sender: FDA-Public Use
  Company Number: KR-UCBSA-069714

PATIENT
  Age: 42 Year
  Sex: Male

DRUGS (2)
  1. KEPPRA [Suspect]
     Route: 048
     Dates: start: 20120817, end: 20121010
  2. VANCOMYCIN [Suspect]
     Dosage: UNKNOWN DOSE
     Dates: end: 2012

REACTIONS (1)
  - Leukopenia [Recovered/Resolved]
